FAERS Safety Report 7870940-X (Version None)
Quarter: 2011Q4

REPORT INFORMATION
  Report Type: 
  Country: None (occurrence: None)
  Receive Date: 20111029
  Receipt Date: 20110221
  Transmission Date: 20120403
  Serious: No
  Sender: FDA-Public Use
  Company Number: US-AMGEN-USASP2011010069

PATIENT
  Age: 62 Year
  Sex: Female

DRUGS (2)
  1. ENBREL [Suspect]
     Indication: PSORIATIC ARTHROPATHY
  2. ENBREL [Suspect]
     Indication: RHEUMATOID ARTHRITIS
     Dosage: 50 MG, QWK
     Dates: start: 20060401

REACTIONS (7)
  - MALAISE [None]
  - TREMOR [None]
  - FEELING COLD [None]
  - INJECTION SITE REACTION [None]
  - PAIN [None]
  - FATIGUE [None]
  - PSORIATIC ARTHROPATHY [None]
